FAERS Safety Report 7047376-7 (Version None)
Quarter: 2010Q4

REPORT INFORMATION
  Report Type: 
  Country: None (occurrence: None)
  Receive Date: 20101014
  Receipt Date: 20101014
  Transmission Date: 20110411
  Serious: Yes (Hospitalization)
  Sender: FDA-Public Use
  Company Number: None

PATIENT
  Age: 28 Year
  Sex: Male

DRUGS (1)
  1. ALEFACEPT 15 MG FOR INJECTION [Suspect]
     Indication: IMMUNOSUPPRESSION
     Dosage: 15 MG WEEKLY SUBCUTANEOUS
     Route: 058
     Dates: start: 20100920, end: 20101004

REACTIONS (2)
  - LYMPHOCELE [None]
  - POST PROCEDURAL COMPLICATION [None]
